FAERS Safety Report 10861296 (Version 1)
Quarter: 2015Q1

REPORT INFORMATION
  Report Type: Spontaneous
  Country: US (occurrence: US)
  Receive Date: 20150224
  Receipt Date: 20150224
  Transmission Date: 20150721
  Serious: No
  Sender: FDA-Public Use
  Company Number: US-ELI_LILLY_AND_COMPANY-US201502003924

PATIENT
  Sex: Female
  Weight: 77.1 kg

DRUGS (22)
  1. FLUTICASONE PROPIONATE. [Concomitant]
     Active Substance: FLUTICASONE PROPIONATE
  2. OXY                                /00002701/ [Concomitant]
  3. SYNTHROID [Concomitant]
     Active Substance: LEVOTHYROXINE SODIUM
  4. DIGOXIN. [Concomitant]
     Active Substance: DIGOXIN
  5. KLOR-CON [Concomitant]
     Active Substance: POTASSIUM CHLORIDE
  6. PROTONIX [Concomitant]
     Active Substance: PANTOPRAZOLE SODIUM
  7. ZOLOFT [Concomitant]
     Active Substance: SERTRALINE HYDROCHLORIDE
  8. ASPIRIN                            /00002701/ [Concomitant]
     Active Substance: ASPIRIN
  9. FAMOTIDINE. [Concomitant]
     Active Substance: FAMOTIDINE
  10. ADCIRCA [Suspect]
     Active Substance: TADALAFIL
     Indication: PRODUCT USED FOR UNKNOWN INDICATION
     Dosage: 1 DF, QD
  11. METOLAZONE. [Suspect]
     Active Substance: METOLAZONE
     Indication: PRODUCT USED FOR UNKNOWN INDICATION
  12. LASIX [Suspect]
     Active Substance: FUROSEMIDE
     Indication: PRODUCT USED FOR UNKNOWN INDICATION
  13. OPSUMIT [Concomitant]
     Active Substance: MACITENTAN
  14. VITAMIN C [Concomitant]
     Active Substance: ASCORBIC ACID
  15. DULERA [Concomitant]
     Active Substance: FORMOTEROL FUMARATE DIHYDRATE\MOMETASONE FUROATE
  16. MILK AMIN [Concomitant]
  17. OXYGEN. [Concomitant]
     Active Substance: OXYGEN
  18. REMODULIN [Suspect]
     Active Substance: TREPROSTINIL
     Indication: PULMONARY HYPERTENSION
     Dosage: 0.054 UNK, UNK
     Dates: start: 20131213
  19. EYE DROPS                          /00256502/ [Concomitant]
     Active Substance: OXYMETAZOLINE
  20. UBIQUINOL [Concomitant]
  21. FUROSEMIDE. [Concomitant]
     Active Substance: FUROSEMIDE
  22. SPIRONOLACTONE. [Concomitant]
     Active Substance: SPIRONOLACTONE

REACTIONS (8)
  - Oedema peripheral [Unknown]
  - Sleep apnoea syndrome [Unknown]
  - Weight decreased [Unknown]
  - Chest pain [Unknown]
  - Dyspnoea [Unknown]
  - Blood pressure decreased [Unknown]
  - Nasal congestion [Unknown]
  - Ascites [Unknown]
